FAERS Safety Report 9482045 (Version 2)
Quarter: 2013Q3

REPORT INFORMATION
  Report Type: Report from Study
  Country: NL (occurrence: NL)
  Receive Date: 20130828
  Receipt Date: 20130911
  Transmission Date: 20140515
  Serious: Yes (Other)
  Sender: FDA-Public Use
  Company Number: NL-CELGENEUS-114-21880-13082214

PATIENT
  Age: 72 Year
  Sex: Male
  Weight: 62 kg

DRUGS (14)
  1. REVLIMID [Suspect]
     Indication: PLASMA CELL MYELOMA
     Route: 048
     Dates: start: 20110610
  2. REVLIMID [Suspect]
     Route: 048
     Dates: start: 20110712
  3. MELPHALAN [Suspect]
     Indication: PLASMA CELL MYELOMA
     Route: 048
     Dates: start: 20110207
  4. PREDNISONE [Suspect]
     Indication: PLASMA CELL MYELOMA
     Route: 048
     Dates: start: 20110207
  5. PREDNISONE [Suspect]
     Route: 048
     Dates: start: 20130201, end: 20130225
  6. PREDNISONE [Suspect]
     Route: 048
  7. CYCLOPHOSPHAMIDE [Suspect]
     Indication: PLASMA CELL MYELOMA
     Route: 048
     Dates: start: 20130201, end: 20130225
  8. CYCLOPHOSPHAMIDE [Suspect]
     Route: 048
  9. CYCLOPHOSPHAMIDE [Suspect]
     Route: 065
     Dates: start: 20130527
  10. BORTEZOMIB [Suspect]
     Indication: PRODUCT USED FOR UNKNOWN INDICATION
     Route: 065
     Dates: start: 20121119, end: 20130201
  11. DARBEPOETIN [Concomitant]
     Indication: HAEMOGLOBIN DECREASED
     Route: 058
     Dates: start: 20130201
  12. TEMAZEPAM [Concomitant]
     Indication: INSOMNIA
     Route: 048
     Dates: start: 20130225
  13. PANTOZOL [Concomitant]
     Indication: DYSPEPSIA
     Route: 048
     Dates: start: 20130206
  14. CALCI CHEW [Concomitant]
     Indication: PROPHYLAXIS
     Route: 048
     Dates: start: 20130222

REACTIONS (1)
  - Rectosigmoid cancer [Recovered/Resolved with Sequelae]
